FAERS Safety Report 20092251 (Version 1)
Quarter: 2021Q4

REPORT INFORMATION
  Report Type: Spontaneous
  Country: US (occurrence: None)
  Receive Date: 20211119
  Receipt Date: 20211119
  Transmission Date: 20220303
  Serious: Yes (Other)
  Sender: FDA-Public Use
  Company Number: 2021A808308

PATIENT
  Sex: Female

DRUGS (2)
  1. FARXIGA [Suspect]
     Active Substance: DAPAGLIFLOZIN PROPANEDIOL
     Route: 048
  2. OZEMPIC [Suspect]
     Active Substance: SEMAGLUTIDE

REACTIONS (4)
  - Haematuria [Unknown]
  - Blood glucose fluctuation [Unknown]
  - Weight decreased [Unknown]
  - Fungal infection [Unknown]
